FAERS Safety Report 8486465 (Version 5)
Quarter: 2013Q2

REPORT INFORMATION
  Report Type: Spontaneous
  Country: US (occurrence: US)
  Receive Date: 20120402
  Receipt Date: 20130605
  Transmission Date: 20140414
  Serious: Yes (Death, Hospitalization)
  Sender: FDA-Public Use
  Company Number: US-VIROPHARMA INCORPORATED-20120323CINRY2771

PATIENT
  Age: 30 Year
  Sex: Female
  Weight: 103.5 kg

DRUGS (7)
  1. CINRYZE (C1 ESTERASE INHIBITOR (HUMAN)) [Suspect]
     Indication: HEREDITARY ANGIOEDEMA
     Dates: start: 20120210, end: 20120322
  2. CINRYZE (C1 ESTERASE INHIBITOR (HUMAN)) [Suspect]
     Dosage: UNKNOWN
     Dates: start: 201204, end: 201204
  3. KALBITOR [Suspect]
     Indication: HEREDITARY ANGIOEDEMA
     Dosage: UNKNOWN
     Route: 065
     Dates: start: 20120126
  4. UNSPECIFIED ALLERGY INJECTION [Suspect]
     Indication: HYPERSENSITIVITY
     Dosage: UNKNOWN
     Route: 065
     Dates: start: 20120320, end: 20120320
  5. APIDRA [Concomitant]
     Indication: TYPE 1 DIABETES MELLITUS
     Dosage: UNKNOWN
     Route: 058
  6. LEXAPRO [Concomitant]
     Indication: PRODUCT USED FOR UNKNOWN INDICATION
     Dosage: UNKNOWN
     Route: 065
  7. COREG [Concomitant]
     Indication: PRODUCT USED FOR UNKNOWN INDICATION
     Dosage: UNKNOWN
     Route: 065

REACTIONS (4)
  - Sepsis [Recovered/Resolved]
  - Pulmonary embolism [Unknown]
  - Hereditary angioedema [Unknown]
  - Angioedema [Not Recovered/Not Resolved]
